FAERS Safety Report 9501826 (Version 2)
Quarter: 2013Q3

REPORT INFORMATION
  Report Type: Spontaneous
  Country: US (occurrence: US)
  Receive Date: 20130905
  Receipt Date: 20130905
  Transmission Date: 20140515
  Serious: No
  Sender: FDA-Public Use
  Company Number: US-ASTRAZENECA-2012SE28720

PATIENT
  Age: 71 Year
  Sex: Female
  Weight: 76.2 kg

DRUGS (4)
  1. SYMBICORT [Suspect]
     Indication: BRONCHITIS CHRONIC
     Dosage: 160/4.5 MCG, 2 PUFFS TWO TIMES A DAY
     Route: 055
     Dates: start: 20120502
  2. SYMBICORT [Suspect]
     Indication: BRONCHITIS CHRONIC
     Dosage: 160/4.5 MCG, 2 PUFFS DAILY
     Route: 055
     Dates: start: 201301
  3. LOSARTAN [Concomitant]
     Indication: HYPERTENSION
     Route: 048
  4. DALIREST [Concomitant]
     Dosage: 500 MCG DAILY
     Route: 048

REACTIONS (5)
  - Back pain [Unknown]
  - Increased upper airway secretion [Unknown]
  - Increased bronchial secretion [Unknown]
  - Insomnia [Unknown]
  - Off label use [Unknown]
